FAERS Safety Report 17185011 (Version 1)
Quarter: 2019Q4

REPORT INFORMATION
  Report Type: Spontaneous
  Country: IL (occurrence: IL)
  Receive Date: 20191220
  Receipt Date: 20191220
  Transmission Date: 20200122
  Serious: Yes (Congenital Anomaly, Other)
  Sender: FDA-Public Use
  Company Number: IL-EMD SERONO-9136163

PATIENT
  Age: 0 Day

DRUGS (1)
  1. MAVENCLAD [Suspect]
     Active Substance: CLADRIBINE
     Indication: RELAPSING MULTIPLE SCLEROSIS
     Route: 050

REACTIONS (3)
  - Premature baby [Recovered/Resolved]
  - Exposure via father [Recovered/Resolved]
  - Hydrops foetalis [Unknown]

NARRATIVE: CASE EVENT DATE: 20191102
